FAERS Safety Report 24929969 (Version 3)
Quarter: 2025Q3

REPORT INFORMATION
  Report Type: Spontaneous
  Country: CA (occurrence: CA)
  Receive Date: 20250205
  Receipt Date: 20250701
  Transmission Date: 20251020
  Serious: Yes (Death, Life-Threatening, Hospitalization, Disabling, Congenital Anomaly, Other)
  Sender: UCB
  Company Number: CA-UCBSA-2025005061

PATIENT
  Age: 40 Year
  Sex: Female

DRUGS (248)
  1. CIMZIA [Suspect]
     Active Substance: CERTOLIZUMAB PEGOL
     Indication: Rheumatoid arthritis
     Route: 058
  2. CIMZIA [Suspect]
     Active Substance: CERTOLIZUMAB PEGOL
     Route: 058
  3. CIMZIA [Suspect]
     Active Substance: CERTOLIZUMAB PEGOL
     Route: 058
  4. CIMZIA [Suspect]
     Active Substance: CERTOLIZUMAB PEGOL
     Indication: Rheumatoid arthritis
  5. CIMZIA [Suspect]
     Active Substance: CERTOLIZUMAB PEGOL
     Indication: Rheumatoid arthritis
  6. CERTOLIZUMAB PEGOL [Suspect]
     Active Substance: CERTOLIZUMAB PEGOL
     Indication: Product used for unknown indication
     Route: 058
  7. CERTOLIZUMAB PEGOL [Suspect]
     Active Substance: CERTOLIZUMAB PEGOL
     Route: 058
  8. CERTOLIZUMAB PEGOL [Suspect]
     Active Substance: CERTOLIZUMAB PEGOL
     Indication: Product used for unknown indication
  9. CETIRIZINE HYDROCHLORIDE [Suspect]
     Active Substance: CETIRIZINE HYDROCHLORIDE
     Indication: Rheumatoid arthritis
  10. CETIRIZINE HYDROCHLORIDE [Suspect]
     Active Substance: CETIRIZINE HYDROCHLORIDE
  11. CETIRIZINE HYDROCHLORIDE [Suspect]
     Active Substance: CETIRIZINE HYDROCHLORIDE
  12. CETIRIZINE HYDROCHLORIDE [Suspect]
     Active Substance: CETIRIZINE HYDROCHLORIDE
     Indication: Rheumatoid arthritis
     Route: 048
  13. CETIRIZINE HYDROCHLORIDE [Suspect]
     Active Substance: CETIRIZINE HYDROCHLORIDE
     Route: 048
  14. CETIRIZINE HYDROCHLORIDE [Suspect]
     Active Substance: CETIRIZINE HYDROCHLORIDE
     Indication: Rheumatoid arthritis
     Route: 016
  15. ACETAMINOPHEN [Suspect]
     Active Substance: ACETAMINOPHEN
     Indication: Rheumatoid arthritis
  16. ACETAMINOPHEN [Suspect]
     Active Substance: ACETAMINOPHEN
  17. ACETAMINOPHEN [Suspect]
     Active Substance: ACETAMINOPHEN
     Indication: Rheumatoid arthritis
  18. ACTEMRA [Suspect]
     Active Substance: TOCILIZUMAB
     Indication: Rheumatoid arthritis
     Route: 058
  19. ACTEMRA [Suspect]
     Active Substance: TOCILIZUMAB
     Route: 058
  20. ACTEMRA [Suspect]
     Active Substance: TOCILIZUMAB
     Route: 058
  21. ACTEMRA [Suspect]
     Active Substance: TOCILIZUMAB
     Route: 058
  22. ACTEMRA [Suspect]
     Active Substance: TOCILIZUMAB
     Route: 058
  23. ACTEMRA [Suspect]
     Active Substance: TOCILIZUMAB
     Route: 058
  24. ACTEMRA [Suspect]
     Active Substance: TOCILIZUMAB
     Dosage: 25 MILLIGRAM, WEEKLY (QW)
     Route: 058
  25. ACTEMRA [Suspect]
     Active Substance: TOCILIZUMAB
     Indication: Rheumatoid arthritis
     Route: 016
  26. ACTEMRA [Suspect]
     Active Substance: TOCILIZUMAB
     Indication: Rheumatoid arthritis
  27. ACTEMRA [Suspect]
     Active Substance: TOCILIZUMAB
  28. ACTEMRA [Suspect]
     Active Substance: TOCILIZUMAB
  29. ACTEMRA [Suspect]
     Active Substance: TOCILIZUMAB
  30. ACTEMRA [Suspect]
     Active Substance: TOCILIZUMAB
  31. ACTEMRA [Suspect]
     Active Substance: TOCILIZUMAB
  32. ACTEMRA [Suspect]
     Active Substance: TOCILIZUMAB
     Indication: Rheumatoid arthritis
     Route: 042
  33. ACTEMRA [Suspect]
     Active Substance: TOCILIZUMAB
     Route: 042
  34. ACTEMRA [Suspect]
     Active Substance: TOCILIZUMAB
     Route: 042
  35. ACTEMRA [Suspect]
     Active Substance: TOCILIZUMAB
     Route: 042
  36. ACTEMRA [Suspect]
     Active Substance: TOCILIZUMAB
     Route: 042
  37. ACTEMRA [Suspect]
     Active Substance: TOCILIZUMAB
     Indication: Rheumatoid arthritis
     Route: 061
  38. ADALIMUMAB [Suspect]
     Active Substance: ADALIMUMAB
     Indication: Rheumatoid arthritis
  39. ADALIMUMAB [Suspect]
     Active Substance: ADALIMUMAB
  40. AIMOVIG [Suspect]
     Active Substance: ERENUMAB-AOOE
     Indication: Migraine
  41. ALENDRONIC ACID [Suspect]
     Active Substance: ALENDRONIC ACID
     Indication: Rheumatoid arthritis
     Route: 048
  42. ALENDRONIC ACID [Suspect]
     Active Substance: ALENDRONIC ACID
     Indication: Rheumatoid arthritis
     Route: 016
  43. ALENDRONIC ACID [Suspect]
     Active Substance: ALENDRONIC ACID
     Indication: Rheumatoid arthritis
  44. LEFLUNOMIDE [Suspect]
     Active Substance: LEFLUNOMIDE
     Indication: Rheumatoid arthritis
  45. LEFLUNOMIDE [Suspect]
     Active Substance: LEFLUNOMIDE
  46. LEFLUNOMIDE [Suspect]
     Active Substance: LEFLUNOMIDE
     Indication: Rheumatoid arthritis
  47. LEFLUNOMIDE [Suspect]
     Active Substance: LEFLUNOMIDE
  48. LEFLUNOMIDE [Suspect]
     Active Substance: LEFLUNOMIDE
     Indication: Rheumatoid arthritis
  49. LEFLUNOMIDE [Suspect]
     Active Substance: LEFLUNOMIDE
  50. LEFLUNOMIDE [Suspect]
     Active Substance: LEFLUNOMIDE
  51. PREDNISONE [Suspect]
     Active Substance: PREDNISONE
     Indication: Rheumatoid arthritis
     Route: 048
  52. PREDNISONE [Suspect]
     Active Substance: PREDNISONE
     Route: 048
  53. PREDNISONE [Suspect]
     Active Substance: PREDNISONE
     Route: 048
  54. PREDNISONE [Suspect]
     Active Substance: PREDNISONE
     Indication: Rheumatoid arthritis
  55. APREMILAST [Suspect]
     Active Substance: APREMILAST
     Indication: Rheumatoid arthritis
  56. ARAVA [Suspect]
     Active Substance: LEFLUNOMIDE
     Indication: Rheumatoid arthritis
     Route: 048
  57. ARAVA [Suspect]
     Active Substance: LEFLUNOMIDE
     Route: 048
  58. ARAVA [Suspect]
     Active Substance: LEFLUNOMIDE
     Indication: Rheumatoid arthritis
  59. AZATHIOPRINE SODIUM [Suspect]
     Active Substance: AZATHIOPRINE SODIUM
     Indication: Rheumatoid arthritis
  60. BERINERT [Suspect]
     Active Substance: HUMAN C1-ESTERASE INHIBITOR
     Indication: Product used for unknown indication
  61. BOTULINUM TOXIN TYPE A [Suspect]
     Active Substance: BOTULINUM TOXIN TYPE A
     Indication: Product used for unknown indication
  62. BUTRANS [Suspect]
     Active Substance: BUPRENORPHINE
     Indication: Migraine
  63. CANDESARTAN [Suspect]
     Active Substance: CANDESARTAN
     Indication: Migraine
  64. CELEBREX [Suspect]
     Active Substance: CELECOXIB
     Indication: Migraine
  65. CELEBREX [Suspect]
     Active Substance: CELECOXIB
     Indication: Migraine
  66. CHLORHEXIDINE GLUCONATE [Suspect]
     Active Substance: CHLORHEXIDINE GLUCONATE
     Indication: Rheumatoid arthritis
     Route: 061
  67. CHOLECALCIFEROL [Suspect]
     Active Substance: CHOLECALCIFEROL
     Indication: Product used for unknown indication
  68. COSENTYX [Suspect]
     Active Substance: SECUKINUMAB
     Indication: Rheumatoid arthritis
  69. DESOXIMETASONE [Suspect]
     Active Substance: DESOXIMETASONE
     Indication: Rheumatoid arthritis
  70. DESOXIMETASONE [Suspect]
     Active Substance: DESOXIMETASONE
     Route: 048
  71. DESOXIMETASONE [Suspect]
     Active Substance: DESOXIMETASONE
     Route: 048
  72. DESOXIMETASONE [Suspect]
     Active Substance: DESOXIMETASONE
  73. DICLOFENAC DIETHYLAMINE [Suspect]
     Active Substance: DICLOFENAC DIETHYLAMINE
     Indication: Product used for unknown indication
  74. DICLOFENAC SODIUM [Suspect]
     Active Substance: DICLOFENAC SODIUM
     Indication: Rheumatoid arthritis
     Route: 058
  75. DICLOFENAC SODIUM [Suspect]
     Active Substance: DICLOFENAC SODIUM
  76. DICLOFENAC SODIUM [Suspect]
     Active Substance: DICLOFENAC SODIUM
  77. DOMPERIDONE MALEATE [Suspect]
     Active Substance: DOMPERIDONE MALEATE
     Indication: Product used for unknown indication
  78. ENBREL [Suspect]
     Active Substance: ETANERCEPT
     Indication: Rheumatoid arthritis
     Route: 058
  79. ENBREL [Suspect]
     Active Substance: ETANERCEPT
     Dosage: 50 MILLIGRAM, WEEKLY (QW)
     Route: 058
  80. ENBREL [Suspect]
     Active Substance: ETANERCEPT
     Route: 058
  81. ENBREL [Suspect]
     Active Substance: ETANERCEPT
     Dosage: 10 MILLIGRAM, WEEKLY (QW)
  82. ENBREL [Suspect]
     Active Substance: ETANERCEPT
     Route: 058
  83. ENBREL [Suspect]
     Active Substance: ETANERCEPT
     Route: 058
  84. ENBREL [Suspect]
     Active Substance: ETANERCEPT
  85. ENBREL [Suspect]
     Active Substance: ETANERCEPT
     Indication: Rheumatoid arthritis
     Dosage: 10 MILLIGRAM, WEEKLY (QW)
  86. ENBREL [Suspect]
     Active Substance: ETANERCEPT
  87. ERELZI [Suspect]
     Active Substance: ETANERCEPT-SZZS
     Indication: Rheumatoid arthritis
  88. ERELZI [Suspect]
     Active Substance: ETANERCEPT-SZZS
     Route: 058
  89. FLUMETHASONE [Suspect]
     Active Substance: FLUMETHASONE
     Indication: Product used for unknown indication
  90. FLUMETHASONE PIVALATE [Suspect]
     Active Substance: FLUMETHASONE PIVALATE
     Indication: Product used for unknown indication
  91. FOLIC ACID [Suspect]
     Active Substance: FOLIC ACID
     Indication: Rheumatoid arthritis
  92. FOLIC ACID [Suspect]
     Active Substance: FOLIC ACID
  93. FOLIC ACID [Suspect]
     Active Substance: FOLIC ACID
  94. FOLIC ACID [Suspect]
     Active Substance: FOLIC ACID
  95. FOLIC ACID [Suspect]
     Active Substance: FOLIC ACID
  96. FOLIC ACID [Suspect]
     Active Substance: FOLIC ACID
  97. FOLIC ACID [Suspect]
     Active Substance: FOLIC ACID
  98. FOLIC ACID [Suspect]
     Active Substance: FOLIC ACID
     Route: 048
  99. FOLIC ACID [Suspect]
     Active Substance: FOLIC ACID
  100. FOLIC ACID [Suspect]
     Active Substance: FOLIC ACID
  101. FOLIC ACID [Suspect]
     Active Substance: FOLIC ACID
     Indication: Rheumatoid arthritis
     Route: 048
  102. FOLIC ACID [Suspect]
     Active Substance: FOLIC ACID
     Route: 048
  103. FOLIC ACID [Suspect]
     Active Substance: FOLIC ACID
     Route: 048
  104. FOLIC ACID [Suspect]
     Active Substance: FOLIC ACID
     Route: 048
  105. FOSAMAX [Suspect]
     Active Substance: ALENDRONATE SODIUM
     Indication: Rheumatoid arthritis
     Route: 048
  106. FOSAMAX [Suspect]
     Active Substance: ALENDRONATE SODIUM
     Route: 016
  107. FOSAMAX [Suspect]
     Active Substance: ALENDRONATE SODIUM
     Dates: start: 2025
  108. GOLD [Suspect]
     Active Substance: GOLD
     Indication: Rheumatoid arthritis
     Route: 016
  109. GOLD SODIUM THIOMALATE [Suspect]
     Active Substance: GOLD SODIUM THIOMALATE
     Indication: Product used for unknown indication
  110. GOLIMUMAB [Suspect]
     Active Substance: GOLIMUMAB
     Indication: Rheumatoid arthritis
     Route: 058
  111. GOLIMUMAB [Suspect]
     Active Substance: GOLIMUMAB
     Indication: Prostatic specific antigen
  112. HUMIRA [Suspect]
     Active Substance: ADALIMUMAB
     Indication: Rheumatoid arthritis
     Route: 058
  113. HUMIRA [Suspect]
     Active Substance: ADALIMUMAB
     Route: 058
  114. HYDROXYCHLOROQUINE [Suspect]
     Active Substance: HYDROXYCHLOROQUINE
     Indication: Rheumatoid arthritis
  115. HYDROXYCHLOROQUINE [Suspect]
     Active Substance: HYDROXYCHLOROQUINE
     Route: 048
  116. HYDROXYCHLOROQUINE [Suspect]
     Active Substance: HYDROXYCHLOROQUINE
  117. HYDROXYCHLOROQUINE [Suspect]
     Active Substance: HYDROXYCHLOROQUINE
     Route: 016
  118. HYDROXYCHLOROQUINE [Suspect]
     Active Substance: HYDROXYCHLOROQUINE
  119. HYDROXYCHLOROQUINE [Suspect]
     Active Substance: HYDROXYCHLOROQUINE
  120. HYDROXYCHLOROQUINE [Suspect]
     Active Substance: HYDROXYCHLOROQUINE
  121. INFLIXIMAB [Suspect]
     Active Substance: INFLIXIMAB
     Indication: Rheumatoid arthritis
  122. INFLIXIMAB [Suspect]
     Active Substance: INFLIXIMAB
  123. LAMICTAL [Suspect]
     Active Substance: LAMOTRIGINE
     Indication: Rheumatoid arthritis
     Route: 048
  124. LAMICTAL [Suspect]
     Active Substance: LAMOTRIGINE
     Route: 048
  125. LEFLUNOMIDE [Suspect]
     Active Substance: LEFLUNOMIDE
     Indication: Rheumatoid arthritis
  126. LEFLUNOMIDE [Suspect]
     Active Substance: LEFLUNOMIDE
  127. METFORMIN HYDROCHLORIDE [Suspect]
     Active Substance: METFORMIN HYDROCHLORIDE
     Indication: Rheumatoid arthritis
     Route: 042
  128. METHOTREXATE [Suspect]
     Active Substance: METHOTREXATE
     Indication: Rheumatoid arthritis
     Route: 013
  129. METHOTREXATE [Suspect]
     Active Substance: METHOTREXATE
     Route: 048
  130. METHOTREXATE [Suspect]
     Active Substance: METHOTREXATE
  131. METHOTREXATE [Suspect]
     Active Substance: METHOTREXATE
  132. METHOTREXATE [Suspect]
     Active Substance: METHOTREXATE
     Dosage: 20 MILLIGRAM, WEEKLY (QW)
     Route: 058
  133. METHOTREXATE [Suspect]
     Active Substance: METHOTREXATE
     Dosage: 20 MILLIGRAM, WEEKLY (QW)
     Route: 048
  134. METHOTREXATE [Suspect]
     Active Substance: METHOTREXATE
     Dosage: 25 MILLIGRAM, WEEKLY (QW)
     Route: 013
  135. METHOTREXATE [Suspect]
     Active Substance: METHOTREXATE
     Dosage: 40 MILLIGRAM, WEEKLY (QW)
     Route: 048
  136. METHOTREXATE [Suspect]
     Active Substance: METHOTREXATE
     Dosage: 25 MILLIGRAM, WEEKLY (QW)
     Route: 048
  137. METHOTREXATE [Suspect]
     Active Substance: METHOTREXATE
     Route: 048
  138. METHOTREXATE [Suspect]
     Active Substance: METHOTREXATE
     Route: 016
  139. METHOTREXATE [Suspect]
     Active Substance: METHOTREXATE
  140. METHOTREXATE [Suspect]
     Active Substance: METHOTREXATE
     Dosage: 25 MILLIGRAM, WEEKLY (QW)
  141. METHYLPREDNISOLONE SODIUM SUCCINATE [Suspect]
     Active Substance: METHYLPREDNISOLONE SODIUM SUCCINATE
     Indication: Rheumatoid arthritis
  142. MINOCYCLINE [Suspect]
     Active Substance: MINOCYCLINE HYDROCHLORIDE
     Indication: Product used for unknown indication
  143. MINOCYCLINE HYDROCHLORIDE [Suspect]
     Active Substance: MINOCYCLINE HYDROCHLORIDE
     Indication: Rheumatoid arthritis
  144. MYOCHRYSINE [Suspect]
     Active Substance: GOLD SODIUM THIOMALATE
     Indication: Rheumatoid arthritis
     Route: 030
  145. MYRBETRIQ [Suspect]
     Active Substance: MIRABEGRON
     Indication: Rheumatoid arthritis
  146. NAPROXEN [Suspect]
     Active Substance: NAPROXEN
     Indication: Product used for unknown indication
  147. NAPROXEN SODIUM [Suspect]
     Active Substance: NAPROXEN SODIUM
     Indication: Rheumatoid arthritis
  148. NUCALA [Suspect]
     Active Substance: MEPOLIZUMAB
     Indication: Rheumatoid arthritis
     Route: 042
  149. NUCALA [Suspect]
     Active Substance: MEPOLIZUMAB
     Route: 042
  150. ORENCIA [Suspect]
     Active Substance: ABATACEPT
     Indication: Rheumatoid arthritis
  151. ORENCIA [Suspect]
     Active Substance: ABATACEPT
  152. ORENCIA [Suspect]
     Active Substance: ABATACEPT
     Route: 042
  153. ORENCIA [Suspect]
     Active Substance: ABATACEPT
  154. ORENCIA [Suspect]
     Active Substance: ABATACEPT
     Dosage: 125 MILLIGRAM, WEEKLY (QW)
     Route: 058
  155. ORENCIA [Suspect]
     Active Substance: ABATACEPT
     Route: 058
  156. ORENCIA [Suspect]
     Active Substance: ABATACEPT
  157. OXYCODONE [Suspect]
     Active Substance: OXYCODONE
     Indication: Product used for unknown indication
  158. OXYCODONE TEREPHTHALATE [Suspect]
     Active Substance: OXYCODONE TEREPHTHALATE
     Indication: Rheumatoid arthritis
  159. PHENYLEPHRINE HYDROCHLORIDE [Suspect]
     Active Substance: PHENYLEPHRINE HYDROCHLORIDE
     Indication: Rheumatoid arthritis
  160. PHTHALYLSULFATHIAZOLE [Suspect]
     Active Substance: PHTHALYLSULFATHIAZOLE
     Indication: Rheumatoid arthritis
     Route: 048
  161. PHTHALYLSULFATHIAZOLE [Suspect]
     Active Substance: PHTHALYLSULFATHIAZOLE
     Route: 058
  162. PHTHALYLSULFATHIAZOLE [Suspect]
     Active Substance: PHTHALYLSULFATHIAZOLE
  163. PHTHALYLSULFATHIAZOLE [Suspect]
     Active Substance: PHTHALYLSULFATHIAZOLE
     Route: 048
  164. PHTHALYLSULFATHIAZOLE [Suspect]
     Active Substance: PHTHALYLSULFATHIAZOLE
  165. PREDNISONE [Suspect]
     Active Substance: PREDNISONE
     Indication: Rheumatoid arthritis
  166. PREDNISONE [Suspect]
     Active Substance: PREDNISONE
  167. PREDNISONE [Suspect]
     Active Substance: PREDNISONE
     Route: 048
  168. PREDNISONE [Suspect]
     Active Substance: PREDNISONE
     Route: 048
  169. PREDNISONE [Suspect]
     Active Substance: PREDNISONE
     Route: 048
  170. PREDNISONE [Suspect]
     Active Substance: PREDNISONE
     Route: 048
  171. PSEUDOEPHEDRINE HYDROCHLORIDE [Suspect]
     Active Substance: PSEUDOEPHEDRINE HYDROCHLORIDE
     Indication: Rheumatoid arthritis
  172. PSEUDOEPHEDRINE HYDROCHLORIDE [Suspect]
     Active Substance: PSEUDOEPHEDRINE HYDROCHLORIDE
  173. PSEUDOEPHEDRINE HYDROCHLORIDE [Suspect]
     Active Substance: PSEUDOEPHEDRINE HYDROCHLORIDE
  174. RAMIPRIL [Suspect]
     Active Substance: RAMIPRIL
     Indication: Rheumatoid arthritis
  175. RAMIPRIL [Suspect]
     Active Substance: RAMIPRIL
     Route: 016
  176. RANITIDINE [Suspect]
     Active Substance: RANITIDINE
     Indication: Rheumatoid arthritis
  177. CETIRIZINE HYDROCHLORIDE\PSEUDOEPHEDRINE HYDROCHLORIDE [Suspect]
     Active Substance: CETIRIZINE HYDROCHLORIDE\PSEUDOEPHEDRINE HYDROCHLORIDE
     Indication: Rheumatoid arthritis
  178. CETIRIZINE HYDROCHLORIDE\PSEUDOEPHEDRINE HYDROCHLORIDE [Suspect]
     Active Substance: CETIRIZINE HYDROCHLORIDE\PSEUDOEPHEDRINE HYDROCHLORIDE
  179. REMICADE [Suspect]
     Active Substance: INFLIXIMAB
     Indication: Rheumatoid arthritis
     Route: 042
  180. REMICADE [Suspect]
     Active Substance: INFLIXIMAB
     Route: 058
  181. REMICADE [Suspect]
     Active Substance: INFLIXIMAB
  182. REMICADE [Suspect]
     Active Substance: INFLIXIMAB
     Route: 042
  183. REMICADE [Suspect]
     Active Substance: INFLIXIMAB
     Route: 016
  184. REMICADE [Suspect]
     Active Substance: INFLIXIMAB
  185. RITUXIMAB [Suspect]
     Active Substance: RITUXIMAB
     Indication: Rheumatoid arthritis
     Route: 016
  186. RITUXIMAB [Suspect]
     Active Substance: RITUXIMAB
  187. RITUXIMAB [Suspect]
     Active Substance: RITUXIMAB
  188. RITUXIMAB [Suspect]
     Active Substance: RITUXIMAB
  189. RITUXIMAB [Suspect]
     Active Substance: RITUXIMAB
     Route: 042
  190. RITUXIMAB [Suspect]
     Active Substance: RITUXIMAB
     Route: 058
  191. RITUXIMAB [Suspect]
     Active Substance: RITUXIMAB
     Indication: Rheumatoid arthritis
     Route: 042
  192. RITUXIMAB [Suspect]
     Active Substance: RITUXIMAB
     Route: 042
  193. RITUXIMAB [Suspect]
     Active Substance: RITUXIMAB
     Route: 042
  194. SIMPONI [Suspect]
     Active Substance: GOLIMUMAB
     Indication: Rheumatoid arthritis
     Route: 058
  195. SIMPONI [Suspect]
     Active Substance: GOLIMUMAB
     Route: 058
  196. SIMPONI [Suspect]
     Active Substance: GOLIMUMAB
  197. SIRUKUMAB [Suspect]
     Active Substance: SIRUKUMAB
     Indication: Product used for unknown indication
  198. GOLD SODIUM THIOMALATE [Suspect]
     Active Substance: GOLD SODIUM THIOMALATE
     Indication: Product used for unknown indication
     Route: 048
  199. GOLD SODIUM THIOMALATE [Suspect]
     Active Substance: GOLD SODIUM THIOMALATE
  200. SULFASALAZINE [Suspect]
     Active Substance: SULFASALAZINE
     Indication: Rheumatoid arthritis
     Route: 058
  201. SULFASALAZINE [Suspect]
     Active Substance: SULFASALAZINE
     Route: 048
  202. SULFASALAZINE [Suspect]
     Active Substance: SULFASALAZINE
     Route: 048
  203. SULFASALAZINE [Suspect]
     Active Substance: SULFASALAZINE
     Route: 048
  204. SULFASALAZINE [Suspect]
     Active Substance: SULFASALAZINE
  205. SULFASALAZINE [Suspect]
     Active Substance: SULFASALAZINE
     Route: 058
  206. SULFASALAZINE [Suspect]
     Active Substance: SULFASALAZINE
     Route: 058
  207. SULFASALAZINE [Suspect]
     Active Substance: SULFASALAZINE
     Route: 048
  208. SULFASALAZINE [Suspect]
     Active Substance: SULFASALAZINE
     Route: 048
  209. SULFASALAZINE [Suspect]
     Active Substance: SULFASALAZINE
     Route: 048
  210. TETRACYCLINE HYDROCHLORIDE [Suspect]
     Active Substance: TETRACYCLINE HYDROCHLORIDE
     Indication: Rheumatoid arthritis
     Route: 048
  211. TOCILIZUMAB [Suspect]
     Active Substance: TOCILIZUMAB
     Indication: Rheumatoid arthritis
  212. TOCILIZUMAB [Suspect]
     Active Substance: TOCILIZUMAB
  213. TOCILIZUMAB [Suspect]
     Active Substance: TOCILIZUMAB
     Route: 042
  214. TOCILIZUMAB [Suspect]
     Active Substance: TOCILIZUMAB
     Route: 058
  215. TOCILIZUMAB [Suspect]
     Active Substance: TOCILIZUMAB
     Route: 016
  216. TOFACITINIB CITRATE [Suspect]
     Active Substance: TOFACITINIB CITRATE
     Indication: Rheumatoid arthritis
  217. TOPIRAMATE [Suspect]
     Active Substance: TOPIRAMATE
     Indication: Rheumatoid arthritis
  218. TOPIRAMATE [Suspect]
     Active Substance: TOPIRAMATE
  219. TOPIRAMATE [Suspect]
     Active Substance: TOPIRAMATE
  220. TOPIRAMATE [Suspect]
     Active Substance: TOPIRAMATE
  221. TRAMADOL HYDROCHLORIDE [Suspect]
     Active Substance: TRAMADOL HYDROCHLORIDE
     Indication: Rheumatoid arthritis
  222. TRIAMCINOLONE ACETONIDE [Suspect]
     Active Substance: TRIAMCINOLONE ACETONIDE
     Indication: Rheumatoid arthritis
     Route: 013
  223. XELJANZ [Suspect]
     Active Substance: TOFACITINIB CITRATE
     Indication: Rheumatoid arthritis
     Route: 048
  224. XELJANZ [Suspect]
     Active Substance: TOFACITINIB CITRATE
     Route: 048
  225. XELJANZ [Suspect]
     Active Substance: TOFACITINIB CITRATE
     Route: 048
  226. DICLOFENAC POTASSIUM [Suspect]
     Active Substance: DICLOFENAC POTASSIUM
     Indication: Product used for unknown indication
  227. DICLOFENAC POTASSIUM [Suspect]
     Active Substance: DICLOFENAC POTASSIUM
  228. DICLOFENAC POTASSIUM [Suspect]
     Active Substance: DICLOFENAC POTASSIUM
  229. HYDROXYCHLOROQUINE SULFATE [Suspect]
     Active Substance: HYDROXYCHLOROQUINE SULFATE
     Indication: Rheumatoid arthritis
     Route: 048
  230. HYDROXYCHLOROQUINE SULFATE [Suspect]
     Active Substance: HYDROXYCHLOROQUINE SULFATE
     Route: 048
  231. DICLOFENAC POTASSIUM [Suspect]
     Active Substance: DICLOFENAC POTASSIUM
     Indication: Rheumatoid arthritis
  232. DICLOFENAC POTASSIUM [Suspect]
     Active Substance: DICLOFENAC POTASSIUM
  233. DICLOFENAC POTASSIUM [Suspect]
     Active Substance: DICLOFENAC POTASSIUM
  234. HYRIMOZ [Suspect]
     Active Substance: ADALIMUMAB-ADAZ
     Indication: Rheumatoid arthritis
     Route: 058
  235. HYRIMOZ [Suspect]
     Active Substance: ADALIMUMAB-ADAZ
     Indication: Rheumatoid arthritis
  236. SULFASALAZINE [Suspect]
     Active Substance: SULFASALAZINE
     Indication: Rheumatoid arthritis
  237. APREMILAST [Suspect]
     Active Substance: APREMILAST
     Indication: Rheumatoid arthritis
  238. APREMILAST [Suspect]
     Active Substance: APREMILAST
     Indication: Rheumatoid arthritis
  239. LEFLUNOMIDE [Suspect]
     Active Substance: LEFLUNOMIDE
     Indication: Rheumatoid arthritis
  240. LEFLUNOMIDE [Suspect]
     Active Substance: LEFLUNOMIDE
  241. LEFLUNOMIDE [Suspect]
     Active Substance: LEFLUNOMIDE
     Indication: Rheumatoid arthritis
     Route: 048
  242. TOPIRAMATE [Suspect]
     Active Substance: TOPIRAMATE
     Indication: Rheumatoid arthritis
  243. TOPIRAMATE [Suspect]
     Active Substance: TOPIRAMATE
     Indication: Rheumatoid arthritis
  244. STELARA [Suspect]
     Active Substance: USTEKINUMAB
     Indication: Rheumatoid arthritis
  245. STELARA [Suspect]
     Active Substance: USTEKINUMAB
     Indication: Rheumatoid arthritis
     Route: 058
  246. USTEKINUMAB [Suspect]
     Active Substance: USTEKINUMAB
     Indication: Product used for unknown indication
     Route: 058
  247. DICLOFENAC [Suspect]
     Active Substance: DICLOFENAC
     Indication: Rheumatoid arthritis
     Route: 058
  248. DICLOFENAC [Suspect]
     Active Substance: DICLOFENAC
     Indication: Rheumatoid arthritis

REACTIONS (20)
  - Bursitis [Fatal]
  - Fall [Fatal]
  - Finger deformity [Fatal]
  - Folliculitis [Fatal]
  - Gastrooesophageal reflux disease [Fatal]
  - Hepatitis [Fatal]
  - Hypoaesthesia [Fatal]
  - Inflammation [Fatal]
  - Injury [Fatal]
  - Liver function test increased [Fatal]
  - Mobility decreased [Fatal]
  - Muscular weakness [Fatal]
  - Neck pain [Fatal]
  - Pain in extremity [Fatal]
  - Pneumonia [Fatal]
  - Underdose [Fatal]
  - Intentional product use issue [Fatal]
  - Incorrect product administration duration [Fatal]
  - Off label use [Fatal]
  - Overdose [Fatal]
